FAERS Safety Report 6698331-8 (Version None)
Quarter: 2010Q2

REPORT INFORMATION
  Report Type: 
  Country: None (occurrence: None)
  Receive Date: 20100427
  Receipt Date: 20100416
  Transmission Date: 20101027
  Serious: Yes (Hospitalization)
  Sender: FDA-Public Use
  Company Number: US-SANOFI-AVENTIS-2010SA023152

PATIENT
  Age: 80 Year
  Sex: Male

DRUGS (7)
  1. LOVENOX [Suspect]
     Route: 065
     Dates: start: 20100401, end: 20100401
  2. LOVENOX [Suspect]
     Route: 065
     Dates: start: 20100414
  3. PLAVIX [Suspect]
     Indication: STENT PLACEMENT
     Route: 065
     Dates: end: 20100401
  4. PLAVIX [Suspect]
     Route: 065
     Dates: start: 20100401, end: 20100401
  5. PLAVIX [Suspect]
     Route: 065
     Dates: start: 20100401
  6. CHOLESTEROL [Concomitant]
  7. DIURETICS [Concomitant]

REACTIONS (3)
  - ABASIA [None]
  - HYPOTENSION [None]
  - MUSCULAR WEAKNESS [None]
